FAERS Safety Report 8177251-6 (Version None)
Quarter: 2012Q1

REPORT INFORMATION
  Report Type: 
  Country: None (occurrence: None)
  Receive Date: 20120301
  Receipt Date: 20120221
  Transmission Date: 20120608
  Serious: Yes (Death)
  Sender: FDA-Public Use
  Company Number: US-BAXTER-2012BH005052

PATIENT
  Age: 65 Year
  Sex: Female

DRUGS (2)
  1. DIANEAL [Suspect]
     Indication: PERITONEAL DIALYSIS
     Route: 033
     Dates: end: 20120126
  2. DIANEAL [Suspect]
     Indication: PERITONEAL DIALYSIS
     Route: 033
     Dates: end: 20120126

REACTIONS (1)
  - NEOPLASM MALIGNANT [None]
